FAERS Safety Report 8430820-8 (Version None)
Quarter: 2012Q2

REPORT INFORMATION
  Report Type: 
  Country: None (occurrence: None)
  Receive Date: 20120612
  Receipt Date: 20120528
  Transmission Date: 20120825
  Serious: Yes (Hospitalization, Other)
  Sender: FDA-Public Use
  Company Number: PL-ROCHE-1041227

PATIENT
  Sex: Male
  Weight: 89.2 kg

DRUGS (24)
  1. FUROSEMIDE [Concomitant]
     Dates: start: 20051123
  2. ALPHACALCIDOL [Concomitant]
     Dates: start: 20060422
  3. OMEPRAZOLE [Concomitant]
     Dates: start: 20070917
  4. ALLOPURINOL [Concomitant]
     Dates: start: 20051123
  5. CALCIUM CARBONATE [Concomitant]
     Dates: start: 20070917
  6. DIOSMINE [Concomitant]
     Dates: start: 20100322
  7. FOLIC ACID [Concomitant]
     Dates: start: 20110114
  8. ACETYLSALICYLIC ACID SRT [Concomitant]
     Dates: start: 20060522
  9. INSULIN HUMAN [Concomitant]
     Dates: start: 20051023
  10. MIRCERA [Suspect]
     Route: 042
     Dates: start: 20120507
  11. TAMSULOSIN HCL [Concomitant]
     Dates: start: 20100212
  12. CINACALCET HYDROCHLORIDE [Concomitant]
     Dates: start: 20111017
  13. CYANOCOBALAMIN [Concomitant]
     Dates: start: 20100203
  14. ETAMSYLATE [Concomitant]
     Dates: start: 20080619
  15. DROTAVERINE [Concomitant]
     Dates: start: 20100816
  16. METOPROLOL [Concomitant]
     Dates: start: 20100514
  17. MAGNESIUM/POTASSIUM [Concomitant]
     Dates: start: 20100712
  18. MIRCERA [Suspect]
     Indication: NEPHROGENIC ANAEMIA
     Dosage: LAST DOSE PRIOR TO SAE  04 APR 2012
     Route: 042
     Dates: start: 20111005
  19. SIMVASTATIN [Concomitant]
     Dates: start: 20051123
  20. MIRCERA [Suspect]
     Dates: start: 20120604
  21. INSULIN ISOPHANE [Concomitant]
     Dosage: 46J DAILY
     Dates: start: 20051123
  22. ALUMINUM HYDROXIDE GEL [Concomitant]
     Dates: start: 20100203
  23. ACETYLCYSTEINE [Concomitant]
     Dates: start: 20100521
  24. DIMETICON [Concomitant]
     Dates: start: 20100816

REACTIONS (4)
  - PYREXIA [None]
  - LOWER GASTROINTESTINAL HAEMORRHAGE [None]
  - RECTAL CANCER [None]
  - PELVIC ABSCESS [None]
